FAERS Safety Report 6418045-9 (Version None)
Quarter: 2009Q4

REPORT INFORMATION
  Report Type: 
  Country: None (occurrence: None)
  Receive Date: 20091028
  Receipt Date: 20091027
  Transmission Date: 20100525
  Serious: No
  Sender: FDA-Public Use
  Company Number: US-ROXANE LABORATORIES, INC.-2009-RO-00876RO

PATIENT
  Sex: Female
  Weight: 68 kg

DRUGS (6)
  1. LITHIUM CARBONATE [Suspect]
     Indication: BIPOLAR DISORDER
     Dosage: 1200 MG
     Dates: start: 19931101, end: 20090908
  2. LITHIUM CARBONATE [Suspect]
     Dates: start: 20090908, end: 20091015
  3. SYNTHROID [Concomitant]
     Indication: HYPOTHYROIDISM
     Dosage: 150 MCG
  4. FISH OIL [Concomitant]
     Indication: DEPRESSION
     Dosage: 1200 MG
     Dates: start: 20090801
  5. OVRAL [Concomitant]
     Indication: CONTRACEPTION
     Dates: start: 20040201
  6. LAMICTAL [Concomitant]
     Dates: start: 20090908

REACTIONS (4)
  - BLOOD CREATININE INCREASED [None]
  - GLOMERULAR FILTRATION RATE DECREASED [None]
  - HYPOTHYROIDISM [None]
  - RENAL DISORDER [None]
